FAERS Safety Report 15268336 (Version 1)
Quarter: 2018Q3

REPORT INFORMATION
  Report Type: Spontaneous
  Country: US (occurrence: US)
  Receive Date: 20180725
  Receipt Date: 20180725
  Transmission Date: 20181010
  Serious: No
  Sender: FDA-Public Use
  Company Number: None

PATIENT
  Sex: Female

DRUGS (4)
  1. PROMACTA [Suspect]
     Active Substance: ELTROMBOPAG OLAMINE
     Indication: IMMUNE THROMBOCYTOPENIC PURPURA
     Dates: start: 20150514
  2. CLARITIN [Concomitant]
     Active Substance: LORATADINE
  3. LOSARTAN. [Concomitant]
     Active Substance: LOSARTAN
  4. ALENDRONATE [Concomitant]
     Active Substance: ALENDRONATE SODIUM

REACTIONS (4)
  - Drug dose omission [None]
  - Alopecia [None]
  - Visual impairment [None]
  - Pain [None]
